FAERS Safety Report 10380615 (Version 1)
Quarter: 2014Q3

REPORT INFORMATION
  Report Type: Spontaneous
  Country: JP (occurrence: JP)
  Receive Date: 20140813
  Receipt Date: 20140813
  Transmission Date: 20150326
  Serious: No
  Sender: FDA-Public Use
  Company Number: PHHY2014JP060006

PATIENT
  Age: 83 Year
  Sex: Male

DRUGS (2)
  1. EXJADE [Suspect]
     Active Substance: DEFERASIROX
     Indication: APLASTIC ANAEMIA
     Dosage: 19.2 MG/KG, DAILY
     Route: 048
  2. NEORAL [Suspect]
     Active Substance: CYCLOSPORINE
     Route: 048

REACTIONS (1)
  - Renal disorder [Unknown]
